FAERS Safety Report 5427381-4 (Version None)
Quarter: 2007Q3

REPORT INFORMATION
  Report Type: 
  Country: None (occurrence: None)
  Receive Date: 20070828
  Receipt Date: 20070821
  Transmission Date: 20080115
  Serious: Yes (Death, Hospitalization)
  Sender: FDA-Public Use
  Company Number: CA-AMGEN-US236919

PATIENT
  Sex: Male

DRUGS (2)
  1. SENSIPAR [Suspect]
     Indication: HYPERPARATHYROIDISM SECONDARY
     Dates: start: 20060720, end: 20070801
  2. COUMADIN [Concomitant]
     Route: 065

REACTIONS (5)
  - ANTICOAGULATION DRUG LEVEL ABOVE THERAPEUTIC [None]
  - BRAIN OPERATION [None]
  - DEATH [None]
  - FALL [None]
  - SUBARACHNOID HAEMORRHAGE [None]
